FAERS Safety Report 5564083-8 (Version None)
Quarter: 2007Q4

REPORT INFORMATION
  Report Type: 
  Country: None (occurrence: None)
  Receive Date: 20071217
  Receipt Date: 20071205
  Transmission Date: 20080405
  Serious: Yes (Other)
  Sender: FDA-Public Use
  Company Number: GB-PFIZER INC-2007104257

PATIENT
  Age: 43 Year
  Sex: Male

DRUGS (3)
  1. CHAMPIX [Suspect]
     Indication: SMOKING CESSATION THERAPY
     Route: 048
  2. CO-CODAMOL [Concomitant]
     Route: 048
  3. IBUPROFEN [Concomitant]
     Route: 048

REACTIONS (2)
  - DEPRESSED MOOD [None]
  - DEPRESSION [None]
